FAERS Safety Report 18027013 (Version 1)
Quarter: 2020Q3

REPORT INFORMATION
  Report Type: Spontaneous
  Country: US (occurrence: US)
  Receive Date: 20200715
  Receipt Date: 20200715
  Transmission Date: 20201103
  Serious: No
  Sender: FDA-Public Use
  Company Number: US-PERRIGO-20US005156

PATIENT
  Age: 73 Year
  Sex: Female
  Weight: 68.03 kg

DRUGS (2)
  1. METRONIDAZOLE. [Suspect]
     Active Substance: METRONIDAZOLE
     Indication: VAGINAL INFECTION
     Dosage: 5 G, NIGHTLY
     Route: 067
     Dates: start: 201911, end: 201911
  2. METRONIDAZOLE. [Suspect]
     Active Substance: METRONIDAZOLE
     Dosage: 5 G, NIGHTLY
     Route: 067
     Dates: start: 20200405

REACTIONS (1)
  - Vulvovaginal pain [Not Recovered/Not Resolved]

NARRATIVE: CASE EVENT DATE: 201911
